FAERS Safety Report 18689524 (Version 1)
Quarter: 2020Q4

REPORT INFORMATION
  Report Type: Spontaneous
  Country: JP (occurrence: JP)
  Receive Date: 20201231
  Receipt Date: 20201231
  Transmission Date: 20210114
  Serious: Yes (Death, Other)
  Sender: FDA-Public Use
  Company Number: JP-JAZZ-2020-JP-017788

PATIENT
  Sex: Male

DRUGS (1)
  1. DEFITELIO [Suspect]
     Active Substance: DEFIBROTIDE SODIUM
     Indication: PRODUCT USED FOR UNKNOWN INDICATION
     Dosage: UNK
     Route: 042
     Dates: start: 20201221, end: 20201223

REACTIONS (3)
  - Venoocclusive liver disease [Fatal]
  - Myelodysplastic syndrome [Fatal]
  - Chronic graft versus host disease [Fatal]

NARRATIVE: CASE EVENT DATE: 20201224
